FAERS Safety Report 11858213 (Version 3)
Quarter: 2016Q1

REPORT INFORMATION
  Report Type: Report from Study
  Country: FR (occurrence: FR)
  Receive Date: 20151222
  Receipt Date: 20160226
  Transmission Date: 20160526
  Serious: Yes (Death, Hospitalization, Other)
  Sender: FDA-Public Use
  Company Number: FR-ACTELION-A-CH2015-128733

PATIENT
  Age: 56 Year
  Sex: Female
  Weight: 61 kg

DRUGS (10)
  1. TRACLEER [Suspect]
     Active Substance: BOSENTAN
     Indication: SCLERODERMA ASSOCIATED DIGITAL ULCER
     Dosage: 125 MG, BID
     Route: 048
     Dates: start: 201003
  2. LANZOR [Concomitant]
     Active Substance: LANSOPRAZOLE
     Dosage: UNK, BID
  3. METHOTREXATE [Concomitant]
     Active Substance: METHOTREXATE
     Dosage: 15 MG, QD
  4. LORAZEPAM. [Suspect]
     Active Substance: LORAZEPAM
     Indication: TOXICITY TO VARIOUS AGENTS
     Route: 065
  5. CORTANCYL [Concomitant]
     Active Substance: PREDNISONE
     Dosage: 6 MG, QD
  6. TRACLEER [Suspect]
     Active Substance: BOSENTAN
     Dosage: 62.5 MG, BID
     Route: 048
     Dates: start: 20100219, end: 201003
  7. LYSANXIA [Suspect]
     Active Substance: PRAZEPAM
     Indication: TOXICITY TO VARIOUS AGENTS
     Dosage: UNK, QD
     Route: 065
     Dates: start: 20140805
  8. TILDIEM [Concomitant]
     Active Substance: DILTIAZEM HYDROCHLORIDE
     Dosage: UNK, BID
  9. PARACETAMOL [Suspect]
     Active Substance: ACETAMINOPHEN
     Indication: TOXICITY TO VARIOUS AGENTS
     Dosage: 36 G, UNK
     Route: 065
  10. ERYTHROMYCINE [Concomitant]
     Active Substance: ERYTHROMYCIN
     Dosage: 125 MG, TID

REACTIONS (18)
  - Uraemic encephalopathy [Unknown]
  - Dyspnoea [Unknown]
  - Respiratory distress [Fatal]
  - Fluid retention [Unknown]
  - Alanine aminotransferase increased [Unknown]
  - Acute kidney injury [Unknown]
  - Pneumonia escherichia [Recovering/Resolving]
  - Hepatic encephalopathy [Unknown]
  - Toxicity to various agents [Unknown]
  - Suicide attempt [Unknown]
  - Abdominal pain [Unknown]
  - Pyrexia [Unknown]
  - Hepatic failure [Unknown]
  - Gamma-glutamyltransferase increased [Unknown]
  - Respiratory failure [Fatal]
  - Septic shock [Fatal]
  - Renal tubular necrosis [Unknown]
  - Enterococcal bacteraemia [Unknown]

NARRATIVE: CASE EVENT DATE: 20140805
